FAERS Safety Report 5180914-8 (Version None)
Quarter: 2006Q4

REPORT INFORMATION
  Report Type: 
  Country: None (occurrence: None)
  Receive Date: 20061215
  Receipt Date: 20061215
  Transmission Date: 20070319
  Serious: Yes (Life-Threatening, Hospitalization)
  Sender: FDA-Public Use
  Company Number: None

PATIENT
  Age: 82 Year
  Sex: Male

DRUGS (15)
  1. OLANZAPINE [Suspect]
     Indication: DEMENTIA
     Dosage: 5MG  AM + 7.5 MG PO
     Route: 048
     Dates: start: 20060524, end: 20060529
  2. LORAZEPAM [Suspect]
     Indication: AGITATION
     Dosage: 5MG ONCE
     Dates: start: 20060529, end: 20060529
  3. DOCUSATE SODIUM [Concomitant]
  4. ACETAMINOPHEN [Concomitant]
  5. HYDROCODONE/ACETOMINOPHEN [Concomitant]
  6. ZOLPIDEM TARTRATE [Concomitant]
  7. LABETALOL HCL [Concomitant]
  8. UROXATRAL [Concomitant]
  9. WARFARIN SODIUM [Concomitant]
  10. LEVOFLOXACIN [Concomitant]
  11. ESOMEPRAZOLE MAGNESIUM [Concomitant]
  12. ASPIRIN [Concomitant]
  13. CASODEX [Concomitant]
  14. NIFEDIPINE [Concomitant]
  15. TAMSULOSIN HCL [Concomitant]

REACTIONS (6)
  - APNOEA [None]
  - CONSTIPATION [None]
  - DEPRESSED LEVEL OF CONSCIOUSNESS [None]
  - EYE ROLLING [None]
  - ORAL INTAKE REDUCED [None]
  - SEDATION [None]
